FAERS Safety Report 6534248-7 (Version None)
Quarter: 2010Q1

REPORT INFORMATION
  Report Type: 
  Country: None (occurrence: None)
  Receive Date: 20100112
  Receipt Date: 20100104
  Transmission Date: 20100710
  Serious: Yes (Death, Hospitalization)
  Sender: FDA-Public Use
  Company Number: CA-JNJFOC-20100100347

PATIENT
  Age: 59 Year
  Sex: Male

DRUGS (3)
  1. INFLIXIMAB [Suspect]
     Route: 042
  2. INFLIXIMAB [Suspect]
     Indication: CROHN'S DISEASE
     Route: 042
  3. METHYLPREDNISOLONE [Concomitant]

REACTIONS (10)
  - ACUTE RESPIRATORY DISTRESS SYNDROME [None]
  - BRONCHOPLEURAL FISTULA [None]
  - CEREBROVASCULAR ACCIDENT [None]
  - CYTOMEGALOVIRUS INFECTION [None]
  - ENTEROCOCCAL INFECTION [None]
  - LEGIONELLA INFECTION [None]
  - LUNG ABSCESS [None]
  - PNEUMOTHORAX [None]
  - PSEUDOMONAS INFECTION [None]
  - SYSTEMIC CANDIDA [None]
